FAERS Safety Report 14257997 (Version 1)
Quarter: 2017Q4

REPORT INFORMATION
  Report Type: Spontaneous
  Country: US (occurrence: US)
  Receive Date: 20171207
  Receipt Date: 20171207
  Transmission Date: 20180321
  Serious: No
  Sender: FDA-Public Use
  Company Number: PHEH2017US037938

PATIENT
  Age: 97 Year
  Sex: Female

DRUGS (3)
  1. DILTIAZEM HYDROCHLORIDE ACTAVIS [Suspect]
     Active Substance: DILTIAZEM HYDROCHLORIDE
     Dosage: UNK (INCREASED DOSE)
     Route: 065
  2. FENTANYL SANDOZ [Suspect]
     Active Substance: FENTANYL
     Indication: PRODUCT USED FOR UNKNOWN INDICATION
     Dosage: UNK
     Route: 065
  3. DILTIAZEM HYDROCHLORIDE ACTAVIS [Suspect]
     Active Substance: DILTIAZEM HYDROCHLORIDE
     Indication: PRODUCT USED FOR UNKNOWN INDICATION
     Dosage: UNK (LOW DOSE)
     Route: 065

REACTIONS (1)
  - Abnormal behaviour [Recovering/Resolving]
